FAERS Safety Report 9299465 (Version 3)
Quarter: 2014Q3

REPORT INFORMATION
  Report Type: Report from Study
  Country: DE (occurrence: DE)
  Receive Date: 20130521
  Receipt Date: 20140916
  Transmission Date: 20150326
  Serious: Yes (Death)
  Sender: FDA-Public Use
  Company Number: DE-ROCHE-1225975

PATIENT
  Age: 69 Year
  Sex: Female
  Weight: 67 kg

DRUGS (6)
  1. BEVACIZUMAB [Suspect]
     Active Substance: BEVACIZUMAB
     Indication: OVARIAN CANCER METASTATIC
     Route: 042
     Dates: start: 20130304
  2. METAMIZOL [Concomitant]
     Active Substance: METAMIZOLE SODIUM
     Indication: METASTATIC NEOPLASM
     Route: 048
     Dates: start: 20130201, end: 20130426
  3. CARBOPLATIN. [Concomitant]
     Active Substance: CARBOPLATIN
     Indication: OVARIAN CANCER
     Route: 065
     Dates: start: 20130304, end: 20130415
  4. PACLITAXEL. [Concomitant]
     Active Substance: PACLITAXEL
     Indication: OVARIAN CANCER
     Route: 065
     Dates: start: 20130304, end: 20130415
  5. CLEXANE [Concomitant]
     Active Substance: ENOXAPARIN SODIUM
     Route: 058
     Dates: start: 20130201, end: 20130426
  6. BEVACIZUMAB [Suspect]
     Active Substance: BEVACIZUMAB
     Route: 042
     Dates: start: 20130415, end: 20130415

REACTIONS (3)
  - Thrombocytopenia [Fatal]
  - Intestinal perforation [Fatal]
  - Leukopenia [Fatal]

NARRATIVE: CASE EVENT DATE: 20130419
